FAERS Safety Report 20225116 (Version 3)
Quarter: 2024Q4

REPORT INFORMATION
  Report Type: Spontaneous
  Country: DE (occurrence: DE)
  Receive Date: 20211223
  Receipt Date: 20241003
  Transmission Date: 20250115
  Serious: Yes (Hospitalization)
  Sender: AMGEN
  Company Number: DE-ADRED-06940-01

PATIENT
  Age: 68 Year
  Sex: Female

DRUGS (15)
  1. TRASTUZUMAB [Suspect]
     Active Substance: TRASTUZUMAB
     Indication: Product used for unknown indication
     Dosage: 515 MG (ON JUNE 9TH, SOLUTION FOR INJECTION/INFUSION)
     Route: 042
  2. TRASTUZUMAB [Suspect]
     Active Substance: TRASTUZUMAB
     Dosage: 670 MG, ON 19. MAY, SOLUTION FOR INJECTION/INFUSION
     Route: 042
  3. TRASTUZUMAB [Suspect]
     Active Substance: TRASTUZUMAB
     Dosage: 617 MG (ON MA 19TH, SOLUTION FOR INJECTION/INFUSION)
     Route: 042
  4. DOCETAXEL [Suspect]
     Active Substance: DOCETAXEL
     Indication: Product used for unknown indication
     Dosage: 75 MILLIGRAM
     Route: 042
  5. DOCETAXEL [Suspect]
     Active Substance: DOCETAXEL
     Dosage: PAUSED ON 09. JUNE DUE TO SIDE EFFECTS, SOLUTION FOR INJECTION/INFUSION
     Route: 042
  6. PERTUZUMAB [Suspect]
     Active Substance: PERTUZUMAB
     Indication: Product used for unknown indication
     Dosage: 840 (ON MA 19TH, SOLUTION FOR INJECTION/INFUSION)
     Route: 042
  7. PERTUZUMAB [Suspect]
     Active Substance: PERTUZUMAB
     Dosage: 420 MG (ON JUNE 9TH, SOLUTION FOR INJECTION/INFUSION)
     Route: 042
  8. PREGABALIN [Concomitant]
     Active Substance: PREGABALIN
     Indication: Product used for unknown indication
     Dosage: 25 MG, QD, (0-0-1-0,CAPSULES)
     Route: 048
  9. VITAMIN D [Concomitant]
     Active Substance: VITAMIN D NOS
     Indication: Product used for unknown indication
     Dosage: QD, (1000 IE, 1-0-0-0, CAPSULE)
     Route: 048
  10. FENTANYL [Concomitant]
     Active Substance: FENTANYL
     Indication: Product used for unknown indication
     Dosage: 0.2 MG (UP TO THREE TIMES A DAY AS NEEDED, ORODISPERSIBLE TABLET)
     Route: 060
  11. NALOXONE HYDROCHLORIDE\OXYCODONE HYDROCHLORIDE [Concomitant]
     Active Substance: NALOXONE HYDROCHLORIDE\OXYCODONE HYDROCHLORIDE
     Indication: Product used for unknown indication
     Dosage: 5|10 MG, 1-0-2-0, RETARD-KAPSELN
     Route: 048
  12. METAMIZOL [Concomitant]
     Active Substance: METAMIZOLE SODIUM
     Indication: Product used for unknown indication
     Dosage: 2000 MILLIGRAM, QD, 500 MG, QID (1-1-1-1, TABLET
     Route: 048
  13. ZOLEDRONIC ACID [Concomitant]
     Active Substance: ZOLEDRONIC ACID
     Indication: Product used for unknown indication
     Dosage: 4 MG (EVERY THREE TO FOUR WEEKS, SOLUTION FOR INJECTION/INFUSION)
     Route: 042
  14. DEXAMETHASONE [Concomitant]
     Active Substance: DEXAMETHASONE
     Indication: Product used for unknown indication
     Dosage: 8 MILLIGRAM, QD, 4 MG, BID , (1-0-1-0, TABLET )
     Route: 048
  15. PANTOPRAZOLE SODIUM [Concomitant]
     Active Substance: PANTOPRAZOLE SODIUM
     Indication: Product used for unknown indication
     Dosage: 40 MG, QD, (TABLET)
     Route: 048

REACTIONS (4)
  - Oesophageal pain [Unknown]
  - Dysphagia [Unknown]
  - Vomiting [Unknown]
  - Off label use [Unknown]
